FAERS Safety Report 18127521 (Version 2)
Quarter: 2021Q3

REPORT INFORMATION
  Report Type: Report from Study
  Country: US (occurrence: US)
  Receive Date: 20200810
  Receipt Date: 20210702
  Transmission Date: 20211014
  Serious: No
  Sender: FDA-Public Use
  Company Number: US-AMGEN-USASP2020123074

PATIENT
  Age: 81 Year
  Sex: Female

DRUGS (8)
  1. K2 [Concomitant]
     Active Substance: JWH-018
     Dosage: UNK
     Dates: start: 2021
  2. AMLODIPINE [Concomitant]
     Active Substance: AMLODIPINE BESYLATE
     Indication: BLOOD PRESSURE SYSTOLIC INCREASED
     Dosage: 5 MILLIGRAM, BID
  3. ZETIA [Concomitant]
     Active Substance: EZETIMIBE
     Dosage: UNK
  4. PLAVIX [Concomitant]
     Active Substance: CLOPIDOGREL BISULFATE
     Dosage: UNK
     Dates: end: 2021
  5. COREG [Concomitant]
     Active Substance: CARVEDILOL
     Dosage: 5 MILLIGRAM, BID
  6. REPATHA [Suspect]
     Active Substance: EVOLOCUMAB
     Indication: HYPERCHOLESTEROLAEMIA
  7. ASPIRIN [ACETYLSALICYLIC ACID] [Concomitant]
     Active Substance: ASPIRIN
     Dosage: UNK
  8. REPATHA [Suspect]
     Active Substance: EVOLOCUMAB
     Indication: ARTERIAL OCCLUSIVE DISEASE
     Dosage: 140 MILLIGRAM, Q2WK
     Route: 065
     Dates: start: 20200617

REACTIONS (12)
  - Overdose [Unknown]
  - Chest pain [Unknown]
  - Wrong technique in product usage process [Unknown]
  - Neck pain [Recovered/Resolved]
  - Hypotension [Unknown]
  - Pain in extremity [Unknown]
  - Onychomycosis [Unknown]
  - Joint noise [Unknown]
  - Mobility decreased [Unknown]
  - Dyspnoea [Unknown]
  - Lymph node pain [Unknown]
  - Joint swelling [Recovered/Resolved]

NARRATIVE: CASE EVENT DATE: 2020
